FAERS Safety Report 8653697 (Version 2)
Quarter: 2012Q4

REPORT INFORMATION
  Report Type: Spontaneous
  Country: DE (occurrence: None)
  Receive Date: 20120618
  Receipt Date: 20120820
  Transmission Date: 20130627
  Serious: Yes (Other)
  Sender: FDA-Public Use
  Company Number: 7137933

PATIENT
  Age: 28 Year
  Sex: Female

DRUGS (1)
  1. LEVOTHYROXINE SODIUM [Suspect]
     Indication: PRODUCT USED FOR UNKNOWN INDICATION
     Dosage: (88 MCG) ORAL
     Route: 048

REACTIONS (3)
  - Postpartum haemorrhage [None]
  - Pregnancy [None]
  - Exposure during pregnancy [None]
